FAERS Safety Report 11894362 (Version 1)
Quarter: 2016Q1

REPORT INFORMATION
  Report Type: Spontaneous
  Country: US (occurrence: None)
  Receive Date: 20160106
  Receipt Date: 20160106
  Transmission Date: 20160526
  Serious: Yes (Hospitalization)
  Sender: FDA-Public Use
  Company Number: None

PATIENT
  Age: 43 Year
  Sex: Female
  Weight: 75.5 kg

DRUGS (1)
  1. OFATUMUMAB [Suspect]
     Active Substance: OFATUMUMAB
     Dates: end: 20151215

REACTIONS (14)
  - Blood creatinine increased [None]
  - Hypokalaemia [None]
  - Diarrhoea [None]
  - Hypophagia [None]
  - Blood sodium decreased [None]
  - Platelet count decreased [None]
  - Neutropenia [None]
  - Blood urea increased [None]
  - Hypotension [None]
  - Clostridial infection [None]
  - Sepsis [None]
  - Infectious colitis [None]
  - Anaemia [None]
  - Malaise [None]

NARRATIVE: CASE EVENT DATE: 20151228
